FAERS Safety Report 18972244 (Version 2)
Quarter: 2021Q1

REPORT INFORMATION
  Report Type: Spontaneous
  Country: US (occurrence: US)
  Receive Date: 20210305
  Receipt Date: 20210320
  Transmission Date: 20210420
  Serious: Yes (Death, Hospitalization)
  Sender: FDA-Public Use
  Company Number: US-JNJFOC-20210247611

PATIENT
  Age: 65 Year
  Sex: Male

DRUGS (3)
  1. ZYTIGA [Suspect]
     Active Substance: ABIRATERONE ACETATE
     Indication: HORMONE-DEPENDENT PROSTATE CANCER
     Route: 048
  2. PREDNISONE. [Suspect]
     Active Substance: PREDNISONE
     Indication: HORMONE-DEPENDENT PROSTATE CANCER
     Route: 065
  3. LEUPROLIDE [LEUPRORELIN] [Suspect]
     Active Substance: LEUPROLIDE ACETATE
     Indication: HORMONE-DEPENDENT PROSTATE CANCER
     Route: 065

REACTIONS (1)
  - Neuroendocrine carcinoma of prostate [Fatal]
